FAERS Safety Report 9175015 (Version 1)
Quarter: 2013Q1

REPORT INFORMATION
  Report Type: Spontaneous
  Country: FR (occurrence: FR)
  Receive Date: 20130320
  Receipt Date: 20130320
  Transmission Date: 20140127
  Serious: Yes (Life-Threatening, Hospitalization)
  Sender: FDA-Public Use
  Company Number: FR-GLAXOSMITHKLINE-B0875088A

PATIENT
  Age: 40 Year
  Sex: Male

DRUGS (3)
  1. ZOVIRAX [Suspect]
     Indication: VARICELLA
     Route: 042
     Dates: start: 20130102, end: 20130112
  2. TICARCILLIN SODIUM+POTASSIUM CLAVULANTE (FORMULATION UNKNOWN (TICARCILLIN NA+K CLAVULAN) [Suspect]
     Indication: ACINETOBACTER INFECTION
     Route: 042
     Dates: start: 20130105, end: 20130120
  3. AMIKACINE MYLAN [Suspect]
     Indication: ACINETOBACTER INFECTION
     Route: 042
     Dates: start: 20130105, end: 20130106

REACTIONS (2)
  - Renal tubular necrosis [Not Recovered/Not Resolved]
  - Renal failure acute [Not Recovered/Not Resolved]
